FAERS Safety Report 13732299 (Version 1)
Quarter: 2017Q3

REPORT INFORMATION
  Report Type: Spontaneous
  Country: KR (occurrence: KR)
  Receive Date: 20170707
  Receipt Date: 20170707
  Transmission Date: 20171127
  Serious: Yes (Other)
  Sender: FDA-Public Use
  Company Number: KR-PURDUE PHARMA-CAN-2017-0007742

PATIENT
  Age: 55 Year
  Sex: Male

DRUGS (8)
  1. LEVODOPA BENSERAZIDE [Interacting]
     Active Substance: BENSERAZIDE\LEVODOPA
     Indication: COGNITIVE DISORDER
     Dosage: 100/25 MG, UNK
     Route: 065
  2. ATOMOXETINE. [Interacting]
     Active Substance: ATOMOXETINE HYDROCHLORIDE
     Dosage: 40 MG, DAILY
     Route: 065
  3. METHYLPHENIDATE HYDROCHLORIDE. [Interacting]
     Active Substance: METHYLPHENIDATE HYDROCHLORIDE
     Dosage: 40 MG, DAILY
     Route: 065
  4. LEVODOPA BENSERAZIDE [Interacting]
     Active Substance: BENSERAZIDE\LEVODOPA
     Dosage: 450/112.5 MG, UNK
     Route: 065
  5. ATOMOXETINE. [Interacting]
     Active Substance: ATOMOXETINE HYDROCHLORIDE
     Dosage: 40 MG, DAILY
     Route: 065
  6. METHYLPHENIDATE HYDROCHLORIDE. [Suspect]
     Active Substance: METHYLPHENIDATE HYDROCHLORIDE
     Indication: COGNITIVE DISORDER
     Dosage: 10 MG, DAILY
     Route: 065
  7. ATOMOXETINE. [Interacting]
     Active Substance: ATOMOXETINE HYDROCHLORIDE
     Dosage: 60 MG, DAILY
     Route: 065
  8. ATOMOXETINE. [Interacting]
     Active Substance: ATOMOXETINE HYDROCHLORIDE
     Indication: LOCKED-IN SYNDROME
     Dosage: 10 MG, DAILY
     Route: 065

REACTIONS (13)
  - Serotonin syndrome [Recovered/Resolved]
  - Agitation [Recovering/Resolving]
  - Drug interaction [Recovered/Resolved]
  - Muscle rigidity [Recovered/Resolved]
  - Off label use [Recovered/Resolved]
  - Hyperhidrosis [Recovered/Resolved]
  - Clonus [Recovered/Resolved]
  - Hypertension [Recovered/Resolved]
  - Diarrhoea [Unknown]
  - Tachycardia [Recovered/Resolved]
  - Tremor [Recovered/Resolved]
  - Pyrexia [Recovered/Resolved]
  - Gastrointestinal sounds abnormal [Unknown]
